FAERS Safety Report 7965058 (Version 3)
Quarter: 2012Q4

REPORT INFORMATION
  Report Type: 
  Country: US (occurrence: US)
  Receive Date: 20110527
  Receipt Date: 20120921
  Transmission Date: 20130627
  Serious: Yes (Other)
  Sender: FDA-Public Use
  Company Number: US-ASTRAZENECA-2011SE31103

PATIENT
  Age: 41 Year
  Sex: Female

DRUGS (9)
  1. SEROQUEL [Suspect]
     Indication: BIPOLAR I DISORDER
     Route: 048
  2. SEROQUEL [Suspect]
     Indication: MOOD ALTERED
     Route: 048
  3. SEROQUEL [Suspect]
     Indication: PARANOIA
     Route: 048
  4. SEROQUEL [Suspect]
     Indication: BIPOLAR I DISORDER
     Route: 048
  5. SEROQUEL [Suspect]
     Indication: MOOD ALTERED
     Route: 048
  6. SEROQUEL [Suspect]
     Indication: PARANOIA
     Route: 048
  7. LAMICTAL [Concomitant]
  8. VALIUM [Concomitant]
     Indication: PANIC DISORDER
  9. TRAZADONE [Concomitant]
     Indication: SLEEP DISORDER

REACTIONS (12)
  - Somnambulism [Recovered/Resolved]
  - Hostility [Unknown]
  - Social fear [Unknown]
  - Activities of daily living impaired [Unknown]
  - Amnesia [Unknown]
  - Feeling abnormal [Unknown]
  - Insomnia [Unknown]
  - Disturbance in attention [Unknown]
  - Apathy [Unknown]
  - Somnambulism [Unknown]
  - Hypersomnia [Unknown]
  - Drug dose omission [Unknown]
